FAERS Safety Report 6087769-8 (Version None)
Quarter: 2009Q1

REPORT INFORMATION
  Report Type: 
  Country: None (occurrence: None)
  Receive Date: 20090223
  Receipt Date: 20090211
  Transmission Date: 20090719
  Serious: Yes (Death, Other)
  Sender: FDA-Public Use
  Company Number: DE-ELI_LILLY_AND_COMPANY-DE200902001285

PATIENT
  Age: 80 Year
  Sex: Male
  Weight: 60 kg

DRUGS (3)
  1. ZYPREXA [Suspect]
     Indication: DEMENTIA
     Dosage: 10 MG, DAILY (1/D)
     Route: 048
  2. CIATYL [Concomitant]
  3. MELPERON [Concomitant]

REACTIONS (7)
  - CENTRAL NERVOUS SYSTEM NECROSIS [None]
  - CEREBRAL HAEMORRHAGE [None]
  - EMPHYSEMA [None]
  - HEPATIC STEATOSIS [None]
  - RENAL ARTERIOSCLEROSIS [None]
  - SEDATION [None]
  - SEPSIS [None]
